FAERS Safety Report 5415383-3 (Version None)
Quarter: 2007Q3

REPORT INFORMATION
  Report Type: 
  Country: None (occurrence: None)
  Receive Date: 20070815
  Receipt Date: 20070621
  Transmission Date: 20080115
  Serious: Yes (Other)
  Sender: FDA-Public Use
  Company Number: US-PURDUE-USA_2007_0028015

PATIENT
  Age: 57 Year
  Sex: Male
  Weight: 128 kg

DRUGS (1)
  1. OXYCONTIN [Suspect]
     Indication: PAIN
     Dosage: 20 MG, SEE TEXT
     Dates: start: 20030314

REACTIONS (10)
  - AGGRESSION [None]
  - DEPRESSION [None]
  - DRUG DEPENDENCE [None]
  - HOMICIDAL IDEATION [None]
  - INADEQUATE ANALGESIA [None]
  - INCORRECT DOSE ADMINISTERED [None]
  - IRRITABILITY [None]
  - MOOD SWINGS [None]
  - PAIN [None]
  - SUICIDAL IDEATION [None]
